FAERS Safety Report 4745364-4 (Version None)
Quarter: 2005Q3

REPORT INFORMATION
  Report Type: 
  Country: None (occurrence: None)
  Receive Date: 20050815
  Receipt Date: 20050808
  Transmission Date: 20060218
  Serious: Yes (Hospitalization)
  Sender: FDA-Public Use
  Company Number: 05-08-1396

PATIENT
  Age: 34 Year
  Sex: Female

DRUGS (2)
  1. FLUOXETINE [Suspect]
     Indication: DEPRESSION
     Dosage: 20MG QD
  2. TEGASEROD [Suspect]
     Indication: IRRITABLE BOWEL SYNDROME
     Dosage: 6MG/KG BID

REACTIONS (2)
  - FEAR [None]
  - PANIC ATTACK [None]
